FAERS Safety Report 9511212 (Version 1)
Quarter: 2013Q1

REPORT INFORMATION
  Report Type: Spontaneous
  Country: US (occurrence: None)
  Receive Date: 20130305
  Receipt Date: 20130305
  Transmission Date: 20140127
  Serious: Yes (Other)
  Sender: FDA-Public Use
  Company Number: 163-21880-12120757

PATIENT
  Age: 64 Year
  Sex: Female
  Weight: 58.97 kg

DRUGS (22)
  1. REVLIMID [Suspect]
     Indication: PLASMA CELL MYELOMA
     Dosage: 15 MG, QHS, PO
     Dates: start: 20121110
  2. PROTONIX [Concomitant]
  3. PEPCID (FAMOTIDINE) [Concomitant]
  4. ACYCLOVIR (ACICLOVIR) [Concomitant]
  5. ZOFRAN (ONDANSETRON HYDROCHLORIDE) [Concomitant]
  6. LEVAQUIN (LEVOFLOXACIN) [Concomitant]
  7. PREVACID (LANSOPRAZOLE) [Concomitant]
  8. OXYCODONE HCL (OXYCODONE HYDROCHLORIDE) [Concomitant]
  9. FOLIC ACID (FOLIC ACID) [Concomitant]
  10. POTASSIUM GLUCONATE (POTASSIUM GLUCONATE) [Concomitant]
  11. VITAMIN D (ERGOCALCIFEROL) [Concomitant]
  12. REVLIMID [Suspect]
     Indication: PLASMA CELL MYELOMA
     Dosage: 15 MG, QHS, PO
     Route: 048
     Dates: start: 20121110
  13. PROTONIX [Concomitant]
  14. PEPCID (FAMOTIDINE) [Concomitant]
  15. ACYCLOVIR (ACICLOVIR) [Concomitant]
  16. ZOFRAN (ONDANSETRON HYDROCHLORIDE) [Concomitant]
  17. LEVAQUIN (LEVOFLOXACIN) [Concomitant]
  18. PREVACID (LANSOPRAZOLE) [Concomitant]
  19. OXYCODONE HCL (OXYCODONE HYDROCHLORIDE) [Concomitant]
  20. FOLIC ACID (FOLIC ACID) [Concomitant]
  21. POTASSIUM GLUCONATE (POTASSIUM GLUCONATE) [Concomitant]
  22. VITAMIN D (ERGOCALCIFEROL) [Concomitant]

REACTIONS (1)
  - Dyspepsia [None]
